FAERS Safety Report 9457858 (Version 1)
Quarter: 2013Q3

REPORT INFORMATION
  Report Type: Spontaneous
  Country: US (occurrence: None)
  Receive Date: 20130812
  Receipt Date: 20130812
  Transmission Date: 20140515
  Serious: Yes (Life-Threatening, Hospitalization)
  Sender: FDA-Public Use
  Company Number: None

PATIENT
  Age: 53 Year
  Sex: Female
  Weight: 80.5 kg

DRUGS (1)
  1. TOFACITINIB [Suspect]
     Indication: RHEUMATOID ARTHRITIS

REACTIONS (1)
  - Gastric ulcer [None]
